FAERS Safety Report 24289596 (Version 1)
Quarter: 2024Q3

REPORT INFORMATION
  Report Type: Report from Study
  Country: ZA (occurrence: None)
  Receive Date: 20240906
  Receipt Date: 20240906
  Transmission Date: 20241017
  Serious: Yes (Life-Threatening, Hospitalization, Other)
  Sender: ASTRAZENECA
  Company Number: 2024A200386

PATIENT
  Age: 51 Year
  Sex: Female

DRUGS (10)
  1. BUDESONIDE\FORMOTEROL FUMARATE DIHYDRATE [Suspect]
     Active Substance: BUDESONIDE\FORMOTEROL FUMARATE DIHYDRATE
     Indication: Asthma
     Dosage: 4.5 MG, UNKNOWN UNKNOWN
     Route: 055
  2. ADCO-PAROXETINE [Concomitant]
     Indication: Depression
     Dosage: 20.0MG UNKNOWN
     Route: 048
  3. EUTHYROX [Concomitant]
     Active Substance: LEVOTHYROXINE SODIUM
     Indication: Hypothyroidism
     Dosage: 100.0MG UNKNOWN
     Route: 048
  4. EUTHYROX [Concomitant]
     Active Substance: LEVOTHYROXINE SODIUM
     Indication: Hypothyroidism
     Dosage: 25.0MG UNKNOWN
     Route: 048
  5. TOPRAZ [Concomitant]
     Indication: Asthma
     Dosage: 10.0MG UNKNOWN
     Route: 048
  6. HYDROCHLOROTHIAZIDE\LISINOPRIL [Concomitant]
     Active Substance: HYDROCHLOROTHIAZIDE\LISINOPRIL
     Indication: Hypertension
     Dosage: 10/12.5 MG12.5MG UNKNOWN
     Route: 048
  7. AZITHROMYCIN [Concomitant]
     Active Substance: AZITHROMYCIN
     Dosage: 500.0MG UNKNOWN
     Route: 048
  8. PREDNISONE [Concomitant]
     Active Substance: PREDNISONE
     Dosage: 5.0MG UNKNOWN
     Route: 048
  9. SINUPRET PLUS [Concomitant]
     Route: 048
  10. K-FENAK OTC [Concomitant]
     Dosage: 50.0MG UNKNOWN
     Route: 048

REACTIONS (2)
  - Anaphylactic shock [Unknown]
  - Hypertension [Unknown]
